FAERS Safety Report 21172381 (Version 6)
Quarter: 2024Q1

REPORT INFORMATION
  Report Type: Spontaneous
  Country: US (occurrence: US)
  Receive Date: 20220804
  Receipt Date: 20240124
  Transmission Date: 20240409
  Serious: Yes (Other)
  Sender: FDA-Public Use
  Company Number: US-PFIZER INC-202200222001

PATIENT
  Age: 66 Year
  Sex: Female

DRUGS (1)
  1. XELJANZ XR [Suspect]
     Active Substance: TOFACITINIB CITRATE
     Dosage: 11 MG, 1X/DAY (ONE TABLET DAILY)
     Route: 048
     Dates: start: 20220203

REACTIONS (8)
  - Skin cancer [Unknown]
  - Neuralgia [Unknown]
  - Blood calcium increased [Unknown]
  - Increased tendency to bruise [Unknown]
  - Appetite disorder [Unknown]
  - Glucose tolerance impaired [Unknown]
  - Urinary tract infection [Unknown]
  - Product prescribing error [Unknown]

NARRATIVE: CASE EVENT DATE: 20230101
